FAERS Safety Report 8595173-3 (Version None)
Quarter: 2012Q3

REPORT INFORMATION
  Report Type: 
  Country: None (occurrence: None)
  Receive Date: 20120815
  Receipt Date: 20100603
  Transmission Date: 20120928
  Serious: Yes (Death)
  Sender: FDA-Public Use
  Company Number: CO-PFIZER INC-2012193907

PATIENT
  Age: 69 Year
  Sex: Male

DRUGS (5)
  1. AMITRIPTYLINE [Concomitant]
     Dosage: 25 MG, 1X/DAY
  2. HYDROCHLOROTHIAZIDE [Concomitant]
     Dosage: 25 MG, 1X/DAY
  3. AMLODIPINE [Concomitant]
     Dosage: 5 MG, 1X/DAY
  4. LOSARTAN [Concomitant]
     Dosage: 50 MG, 2X/DAY
  5. LIPITOR [Suspect]
     Indication: DYSLIPIDAEMIA
     Dosage: 10 MG, 1X/DAY

REACTIONS (2)
  - DEATH [None]
  - HYPERAESTHESIA [None]
